FAERS Safety Report 15030399 (Version 1)
Quarter: 2018Q2

REPORT INFORMATION
  Report Type: Spontaneous
  Country: DE (occurrence: DE)
  Receive Date: 20180619
  Receipt Date: 20180619
  Transmission Date: 20180711
  Serious: Yes (Hospitalization)
  Sender: FDA-Public Use
  Company Number: DE-US WORLDMEDS, LLC-STA_00019241

PATIENT
  Age: 73 Year
  Sex: Male

DRUGS (2)
  1. INSULIN PUMP SYSTEM [Concomitant]
  2. APOMORPHINE HYDROCHLORIDE [Suspect]
     Active Substance: APOMORPHINE HYDROCHLORIDE
     Indication: PARKINSON^S DISEASE
     Dates: start: 20100704, end: 201008

REACTIONS (6)
  - Injection site inflammation [Unknown]
  - Nodule [Unknown]
  - Psoriasis [Unknown]
  - Drug ineffective [Unknown]
  - Hospitalisation [Unknown]
  - Blood glucose fluctuation [Unknown]

NARRATIVE: CASE EVENT DATE: 20100704
